FAERS Safety Report 9397113 (Version 1)
Quarter: 2013Q3

REPORT INFORMATION
  Report Type: Spontaneous
  Country: US (occurrence: US)
  Receive Date: 20130712
  Receipt Date: 20130712
  Transmission Date: 20140515
  Serious: No
  Sender: FDA-Public Use
  Company Number: US-PFIZER INC-2013202370

PATIENT
  Age: 70 Year
  Sex: Male
  Weight: 111.11 kg

DRUGS (3)
  1. DOXYCYCLINE HYCLATE [Suspect]
  2. BACITRACIN ZINC/NEOMYCIN SULFATE/POLYMYXIN B SULFATE [Suspect]
  3. CEPHALEXIN [Suspect]

REACTIONS (1)
  - Drug hypersensitivity [Unknown]
